FAERS Safety Report 4580993-2 (Version None)
Quarter: 2005Q1

REPORT INFORMATION
  Report Type: 
  Country: None (occurrence: None)
  Receive Date: 20050214
  Receipt Date: 20040709
  Transmission Date: 20050727
  Serious: No
  Sender: FDA-Public Use
  Company Number: US-GLAXOSMITHKLINE-A0518353A

PATIENT
  Age: 70 Year
  Sex: Male

DRUGS (4)
  1. LAMICTAL [Suspect]
     Indication: BIPOLAR DISORDER
     Dosage: 100MG TWICE PER DAY
     Route: 048
     Dates: start: 20031212, end: 20040413
  2. EFFEXOR XR [Concomitant]
     Dosage: 150MG PER DAY
     Route: 065
     Dates: start: 20020401
  3. WELLBUTRIN SR [Concomitant]
     Dosage: 100MG UNKNOWN
     Route: 048
     Dates: start: 20020401
  4. SONATA [Concomitant]
     Dosage: 10U PER DAY
     Route: 065
     Dates: start: 20020401

REACTIONS (1)
  - PRURITUS [None]
